FAERS Safety Report 7707729 (Version 4)
Quarter: 2013Q3

REPORT INFORMATION
  Report Type: Spontaneous
  Country: US (occurrence: US)
  Receive Date: 20101214
  Receipt Date: 20130717
  Transmission Date: 20140515
  Serious: Yes (Other)
  Sender: FDA-Public Use
  Company Number: US-ASTRAZENECA-2009SE32631

PATIENT
  Age: 80 Year
  Sex: Male
  Weight: 74.4 kg

DRUGS (12)
  1. CRESTOR [Suspect]
     Indication: BLOOD CHOLESTEROL INCREASED
     Route: 048
  2. CRESTOR [Suspect]
     Indication: BLOOD CHOLESTEROL INCREASED
     Route: 048
  3. CRESTOR [Suspect]
     Indication: BLOOD CHOLESTEROL INCREASED
     Route: 048
     Dates: end: 201205
  4. CRESTOR [Suspect]
     Indication: BLOOD CHOLESTEROL INCREASED
     Route: 048
     Dates: end: 20130409
  5. METOPROLOL SUCCINATE [Concomitant]
     Indication: HYPERTENSION
  6. METOPROLOL TARTRATE [Concomitant]
     Indication: HYPERTENSION
     Route: 048
  7. METOPROLOL TARTRATE [Concomitant]
     Indication: CARDIAC DISORDER
     Route: 048
  8. LIPITOR [Concomitant]
  9. PRAVASTATIN [Concomitant]
  10. ZOCOR [Concomitant]
  11. VIAGRA [Concomitant]
  12. BLUE PILL [Concomitant]

REACTIONS (11)
  - Loss of consciousness [Recovered/Resolved]
  - Circulatory collapse [Recovered/Resolved]
  - Sexual dysfunction [Unknown]
  - Erectile dysfunction [Unknown]
  - Anorgasmia [Unknown]
  - Dyspnoea [Recovered/Resolved]
  - Condition aggravated [Recovered/Resolved]
  - Epistaxis [Recovered/Resolved]
  - Dyspnoea exertional [Unknown]
  - Dyspnoea [Recovered/Resolved]
  - Intentional drug misuse [Unknown]
